FAERS Safety Report 7150828-2 (Version None)
Quarter: 2010Q4

REPORT INFORMATION
  Report Type: 
  Country: None (occurrence: None)
  Receive Date: 20101126
  Receipt Date: 20101119
  Transmission Date: 20110411
  Serious: Yes (Hospitalization)
  Sender: FDA-Public Use
  Company Number: WAES 0907USA00306

PATIENT
  Age: 73 Year
  Sex: Male

DRUGS (20)
  1. CAP VORINOSTAT [Suspect]
     Indication: MULTIPLE MYELOMA
     Dosage: 400 MG DAILY, PO
     Route: 048
     Dates: start: 20090616, end: 20090628
  2. CAP VORINOSTAT [Suspect]
     Indication: MULTIPLE MYELOMA
     Dosage: 400 MG DAILY, PO
     Route: 048
     Dates: start: 20090526, end: 20090708
  3. CAP VORINOSTAT [Suspect]
     Indication: MULTIPLE MYELOMA
     Dosage: 400 MG DAILY, PO
     Route: 048
     Dates: start: 20090717, end: 20090719
  4. BORTEZOMIB [Suspect]
     Dosage: 2.11 MG, 1.63 MG
     Dates: start: 20090526, end: 20090526
  5. BORTEZOMIB [Suspect]
     Dosage: 2.11 MG, 1.63 MG
     Dates: start: 20090529, end: 20090529
  6. BORTEZOMIB [Suspect]
     Dosage: 2.11 MG, 1.63 MG
     Dates: start: 20090602, end: 20090602
  7. BORTEZOMIB [Suspect]
     Dosage: 2.11 MG, 1.63 MG
     Dates: start: 20090605, end: 20090605
  8. BORTEZOMIB [Suspect]
     Dosage: 2.11 MG, 1.63 MG
     Dates: start: 20090616, end: 20090616
  9. BORTEZOMIB [Suspect]
     Dosage: 2.11 MG, 1.63 MG
     Dates: start: 20090619, end: 20090619
  10. BORTEZOMIB [Suspect]
     Dosage: 2.11 MG, 1.63 MG
     Dates: start: 20090623, end: 20090623
  11. BORTEZOMIB [Suspect]
     Dosage: 2.11 MG, 1.63 MG
     Dates: start: 20090626, end: 20090626
  12. BORTEZOMIB [Suspect]
     Dosage: 2.11 MG, 1.63 MG
     Dates: start: 20090707, end: 20090707
  13. BORTEZOMIB [Suspect]
     Dosage: 2.11 MG, 1.63 MG
     Dates: start: 20090710, end: 20090710
  14. BORTEZOMIB [Suspect]
     Dosage: 2.11 MG, 1.63 MG
     Dates: start: 20090714, end: 20090714
  15. BORTEZOMIB [Suspect]
     Dosage: 2.11 MG, 1.63 MG
     Dates: start: 20090717, end: 20090717
  16. AUGMENTIN '125' [Concomitant]
  17. ESOMEZOL (ESOMEPRAZOLE MAGNESIUM) [Concomitant]
  18. OXYCONTIN [Concomitant]
  19. PROAMIN [Concomitant]
  20. TRESTAN [Concomitant]

REACTIONS (5)
  - ASTHENIA [None]
  - CHRONIC OBSTRUCTIVE PULMONARY DISEASE [None]
  - RENAL FAILURE [None]
  - SYNCOPE [None]
  - VOMITING [None]
